FAERS Safety Report 8381558-7 (Version None)
Quarter: 2012Q2

REPORT INFORMATION
  Report Type: 
  Country: None (occurrence: None)
  Receive Date: 20120523
  Receipt Date: 20120508
  Transmission Date: 20120825
  Serious: Yes (Other)
  Sender: FDA-Public Use
  Company Number: CHPA2012US005706

PATIENT
  Sex: Female

DRUGS (5)
  1. EXCEDRIN (MIGRAINE) [Suspect]
     Indication: MIGRAINE
     Dosage: UNK DF, UNK
     Route: 048
     Dates: start: 20070101, end: 20100101
  2. TYLENOL [Suspect]
     Route: 048
  3. EXCEDRIN TENSION HEADACHE CAPLETS [Concomitant]
     Dosage: 2 DF, PRN
     Route: 048
  4. EXCEDRIN EXTRA STRENGTH TABLETS [Suspect]
     Indication: MIGRAINE
     Dosage: UNK DF, UNK
     Route: 048
     Dates: start: 20070101, end: 20100101
  5. EXCEDRIN TENSION HEADACHE CAPLETS [Suspect]
     Indication: MIGRAINE
     Dosage: UNK, UNK
     Route: 048
     Dates: start: 20100101, end: 20120301

REACTIONS (2)
  - PREMATURE BABY [None]
  - MATERNAL EXPOSURE DURING PREGNANCY [None]
